FAERS Safety Report 9346471 (Version 1)
Quarter: 2013Q2

REPORT INFORMATION
  Report Type: Spontaneous
  Country: RU (occurrence: RU)
  Receive Date: 20130613
  Receipt Date: 20130613
  Transmission Date: 20140414
  Serious: Yes (Death, Other)
  Sender: FDA-Public Use
  Company Number: RU-JNJFOC-20130602166

PATIENT
  Sex: Female

DRUGS (1)
  1. REMICADE [Suspect]
     Indication: CROHN^S DISEASE
     Route: 042
     Dates: start: 201302, end: 201304

REACTIONS (14)
  - Death [Fatal]
  - Arteriosclerosis coronary artery [Unknown]
  - Pneumonia [Unknown]
  - Pulmonary tuberculosis [Unknown]
  - Tuberculous pleurisy [Unknown]
  - Cor pulmonale [Unknown]
  - Bronchitis chronic [Unknown]
  - Emphysema [Unknown]
  - Pulmonary fibrosis [Unknown]
  - Coronary artery disease [Unknown]
  - Aortic arteriosclerosis [Unknown]
  - Nephropathy [Unknown]
  - Cerebral arteriosclerosis [Unknown]
  - Disseminated tuberculosis [Unknown]
